FAERS Safety Report 7796191-5 (Version None)
Quarter: 2011Q4

REPORT INFORMATION
  Report Type: 
  Country: None (occurrence: None)
  Receive Date: 20111004
  Receipt Date: 20110919
  Transmission Date: 20120403
  Serious: Yes (Other)
  Sender: FDA-Public Use
  Company Number: US-WATSON-2011-15696

PATIENT
  Age: 39 Year
  Sex: Female

DRUGS (1)
  1. FIORICET [Suspect]
     Indication: MIGRAINE WITHOUT AURA
     Dosage: UNKNOWN
     Route: 065

REACTIONS (2)
  - HEADACHE [None]
  - DRUG DEPENDENCE [None]
